FAERS Safety Report 20645374 (Version 3)
Quarter: 2022Q2

REPORT INFORMATION
  Report Type: Spontaneous
  Country: CN (occurrence: CN)
  Receive Date: 20220328
  Receipt Date: 20220425
  Transmission Date: 20220721
  Serious: Yes (Other)
  Sender: FDA-Public Use
  Company Number: CN-FERRINGPH-2022FE01317

PATIENT

DRUGS (1)
  1. DINOPROSTONE [Suspect]
     Active Substance: DINOPROSTONE
     Indication: Induction of cervix ripening
     Dosage: 1 DOSAGE FORM, ONCE/SINGLE
     Route: 067
     Dates: start: 20220318, end: 20220318

REACTIONS (1)
  - Premature separation of placenta [Recovering/Resolving]

NARRATIVE: CASE EVENT DATE: 20220318
